FAERS Safety Report 19118561 (Version 3)
Quarter: 2021Q2

REPORT INFORMATION
  Report Type: Spontaneous
  Country: PL (occurrence: PL)
  Receive Date: 20210410
  Receipt Date: 20210608
  Transmission Date: 20210717
  Serious: Yes (Other)
  Sender: FDA-Public Use
  Company Number: PL-AMGEN-POLSP2021050271

PATIENT
  Age: 75 Year
  Sex: Male

DRUGS (16)
  1. PACLITAXEL. [Concomitant]
     Active Substance: PACLITAXEL
     Dosage: 230 MILLIGRAM
     Dates: start: 20200606
  2. GEMCITABINE. [Concomitant]
     Active Substance: GEMCITABINE
     Dosage: 800 MILLIGRAM/SQ. METER
     Dates: start: 20201020
  3. GEMCITABINE. [Concomitant]
     Active Substance: GEMCITABINE
     Dosage: 600 MILLIGRAM/SQ. METER, QD
     Dates: start: 20201216
  4. PACLITAXEL. [Concomitant]
     Active Substance: PACLITAXEL
     Dosage: 125 MILLIGRAM/SQ. METER
     Dates: start: 20201020
  5. PACLITAXEL. [Concomitant]
     Active Substance: PACLITAXEL
     Dosage: 75 MILLIGRAM/SQ. METER, QD
     Dates: start: 20201216
  6. PACLITAXEL. [Concomitant]
     Active Substance: PACLITAXEL
     Dosage: 138 MILLIGRAM
     Dates: start: 20201230
  7. GEMCITABINE. [Concomitant]
     Active Substance: GEMCITABINE
     Dosage: 1860 MILLIGRAM
     Dates: start: 20200606
  8. PACLITAXEL. [Concomitant]
     Active Substance: PACLITAXEL
     Dosage: 225 MILLIGRAM
     Dates: start: 20201202
  9. GEMCITABINE. [Concomitant]
     Active Substance: GEMCITABINE
     Dosage: 1110 MILLIGRAM
     Dates: start: 20201230
  10. FERRUM [IRON] [Concomitant]
     Active Substance: IRON
     Dosage: 320 MILLIGRAM, BID
     Route: 048
  11. ACIDUM FOLICUM [Concomitant]
     Active Substance: FOLIC ACID
     Dosage: 15 MILLIGRAM, BID
  12. VITAMIN C [Concomitant]
     Active Substance: ASCORBIC ACID
     Dosage: 500 MILLIGRAM, BID
  13. PACLITAXEL. [Concomitant]
     Active Substance: PACLITAXEL
     Dosage: 100 MILLIGRAM/SQ. METER, QD
     Dates: start: 20201209
  14. GEMCITABINE. [Concomitant]
     Active Substance: GEMCITABINE
     Dosage: 800 MILLIGRAM/SQ. METER, QD
     Dates: start: 20201209
  15. ARANESP [Suspect]
     Active Substance: DARBEPOETIN ALFA
     Indication: PRODUCT USED FOR UNKNOWN INDICATION
     Dosage: 500 MICROGRAM, Q3WK
     Route: 058
     Dates: start: 20200721
  16. GEMCITABINE. [Concomitant]
     Active Substance: GEMCITABINE
     Dosage: 1450 MILLIGRAM
     Dates: start: 20201202

REACTIONS (2)
  - Atrial flutter [Recovered/Resolved]
  - COVID-19 pneumonia [Recovered/Resolved]

NARRATIVE: CASE EVENT DATE: 20201110
